FAERS Safety Report 24140517 (Version 1)
Quarter: 2024Q3

REPORT INFORMATION
  Report Type: Spontaneous
  Country: TW (occurrence: TW)
  Receive Date: 20240726
  Receipt Date: 20240726
  Transmission Date: 20241017
  Serious: Yes (Life-Threatening, Hospitalization, Other)
  Sender: BRISTOL MYERS SQUIBB
  Company Number: TW-BRISTOL-MYERS SQUIBB COMPANY-BMS-2019-008883

PATIENT
  Age: 62 Year
  Sex: Male

DRUGS (1)
  1. NIVOLUMAB [Suspect]
     Active Substance: NIVOLUMAB
     Indication: Hepatocellular carcinoma
     Dosage: 140 MG, UNK
     Route: 042
     Dates: start: 20181214

REACTIONS (4)
  - Immune-mediated myositis [Recovered/Resolved]
  - Immune-mediated myasthenia gravis [Recovered/Resolved]
  - Metastases to bone [Unknown]
  - Prescribed underdose [Unknown]
